FAERS Safety Report 7551798-5 (Version None)
Quarter: 2011Q2

REPORT INFORMATION
  Report Type: 
  Country: None (occurrence: None)
  Receive Date: 20110616
  Receipt Date: 20110606
  Transmission Date: 20111010
  Serious: Yes (Death, Hospitalization)
  Sender: FDA-Public Use
  Company Number: Z0009697B

PATIENT
  Sex: Male
  Weight: 61.5 kg

DRUGS (2)
  1. SUNITINIB MALATE [Suspect]
     Indication: RENAL CELL CARCINOMA
     Dosage: 50MG PER DAY
     Route: 048
     Dates: start: 20110426
  2. PAZOPANIB [Suspect]
     Indication: RENAL CELL CARCINOMA
     Dosage: 800MG PER DAY
     Route: 048
     Dates: start: 20110208, end: 20110408

REACTIONS (1)
  - TACHYCARDIA [None]
